FAERS Safety Report 6155763-4 (Version None)
Quarter: 2009Q2

REPORT INFORMATION
  Report Type: 
  Country: None (occurrence: None)
  Receive Date: 20090415
  Receipt Date: 20090402
  Transmission Date: 20091009
  Serious: Yes (Hospitalization)
  Sender: FDA-Public Use
  Company Number: CN-BRISTOL-MYERS SQUIBB COMPANY-14531867

PATIENT
  Age: 38 Year
  Sex: Female

DRUGS (1)
  1. DASATINIB [Suspect]
     Indication: CHRONIC MYELOID LEUKAEMIA
     Dosage: 100MG 04NOV08-16DEC08:100,INT'D 17DEC08-17FEB09;18FEB09-16MAR09:80;INT'D 17MAR09; RESUMED 03APR;50MG
     Route: 048
     Dates: start: 20081104

REACTIONS (2)
  - HENOCH-SCHONLEIN PURPURA [None]
  - SYSTEMIC LUPUS ERYTHEMATOSUS [None]
